FAERS Safety Report 9202429 (Version 2)
Quarter: 2013Q4

REPORT INFORMATION
  Report Type: Spontaneous
  Country: US (occurrence: US)
  Receive Date: 20130401
  Receipt Date: 20131203
  Transmission Date: 20140711
  Serious: Yes (Other)
  Sender: FDA-Public Use
  Company Number: US-BAYER-2013-038705

PATIENT
  Age: 22 Year
  Sex: Female

DRUGS (22)
  1. YAZ [Suspect]
  2. YASMIN [Suspect]
  3. OCELLA [Suspect]
  4. LIDOCAINE VISCOUS [Concomitant]
     Dosage: 2 UNK, UNK
  5. DIAZEPAM [Concomitant]
     Dosage: 10 MG, UNK
     Route: 048
     Dates: start: 20090114
  6. CLOTRIMAZOLE W/BETAMETHASONE DIPROPIONAT [Concomitant]
     Dosage: UNK
     Route: 061
     Dates: start: 20090122
  7. RALENOVA [Concomitant]
     Dosage: 108 MCG, UNK
     Route: 045
     Dates: start: 20090123
  8. SUDAFED [Concomitant]
     Dosage: UNK
     Route: 048
     Dates: start: 20090219
  9. PROVENTIL [Concomitant]
     Dosage: UNK
     Dates: start: 20090219
  10. PROVENTIL [Concomitant]
  11. DIPHENOXYLATE/ATROPINE [DIPHENOXYLATE HYDROCHLORIDE] [Concomitant]
     Dosage: 2.5 MG, UNK
     Route: 048
     Dates: start: 20090305
  12. PROCHLORPERAZINE [Concomitant]
     Dosage: 10 MG, UNK
     Route: 048
     Dates: start: 20090305
  13. AZITHROMYCIN [Concomitant]
     Dosage: 250 MG, UNK
     Route: 048
     Dates: start: 20090317
  14. HYDROCODONE W/APAP [Concomitant]
     Dosage: 5MG/500MG
     Route: 048
     Dates: start: 20090318
  15. EFFEXOR [Concomitant]
     Dosage: UNK
     Route: 048
     Dates: start: 20090325
  16. ZYRTEC [Concomitant]
     Dosage: UNK
     Route: 048
     Dates: start: 20090325
  17. PROTONIX [Concomitant]
     Dosage: UNK
     Route: 048
     Dates: start: 20090325
  18. ALBUTEROL [Concomitant]
     Dosage: UNK
     Route: 048
     Dates: start: 20090325
  19. Z-PAK [Concomitant]
     Dosage: UNK
     Route: 048
     Dates: start: 20090325
  20. PREDNISONE [Concomitant]
     Dosage: UNK
     Route: 048
     Dates: start: 20090325
  21. GAS-X [Concomitant]
     Dosage: UNK
     Route: 048
     Dates: start: 20090325
  22. CHLORASEPTIC [Concomitant]
     Dosage: UNK
     Route: 061
     Dates: start: 20090325

REACTIONS (5)
  - Gallbladder injury [None]
  - Cholecystitis chronic [None]
  - Injury [None]
  - Pain [None]
  - Pain [None]
